FAERS Safety Report 6189463-1 (Version None)
Quarter: 2009Q2

REPORT INFORMATION
  Report Type: 
  Country: None (occurrence: None)
  Receive Date: 20090514
  Receipt Date: 20090501
  Transmission Date: 20091009
  Serious: Yes (Life-Threatening, Other)
  Sender: FDA-Public Use
  Company Number: CA-PFIZER INC-2008032295

PATIENT
  Age: 54 Year

DRUGS (8)
  1. CHAMPIX [Suspect]
     Indication: SMOKING CESSATION THERAPY
     Dosage: 1 MG, 2X/DAY
     Route: 048
     Dates: start: 20071017, end: 20071109
  2. CRESTOR [Concomitant]
     Dosage: 10 MG, 1X/DAY
     Route: 048
  3. SPIRIVA [Concomitant]
     Dosage: 18 UG, 1X/DAY
     Route: 055
  4. TOPAMAX [Concomitant]
     Dosage: 100 MG, 1X/DAY
     Route: 048
  5. VITAMIN D [Concomitant]
     Dosage: 1000 IU, 1X/DAY
     Route: 048
  6. ZOPICLONE [Concomitant]
     Dosage: 7.5 MG, 1X/DAY
     Route: 048
  7. PANTOLOC ^NYCOMED^ [Concomitant]
     Dosage: 40 MG, 1X/DAY
  8. ASPIRIN 10GR TIMED DISINTEGRATION TAB [Concomitant]
     Dosage: 81 MG, 1X/DAY
     Route: 048

REACTIONS (4)
  - FALL [None]
  - HEMIPLEGIA [None]
  - PARAESTHESIA [None]
  - VERTIGO [None]
